FAERS Safety Report 9243978 (Version 1)
Quarter: 2013Q1

REPORT INFORMATION
  Report Type: Spontaneous
  Country: US (occurrence: None)
  Receive Date: 20121123
  Receipt Date: 20121123
  Transmission Date: 20140127
  Serious: No
  Sender: FDA-Public Use
  Company Number: 362710

PATIENT
  Age: 45 Year
  Sex: Female

DRUGS (2)
  1. VICTOZA [Suspect]
     Indication: TYPE 2 DIABETES MELLITUS
     Route: 058
  2. METFORMIN (METFORMIN) [Concomitant]

REACTIONS (5)
  - Pyrexia [None]
  - Oedema peripheral [None]
  - Vomiting [None]
  - Nausea [None]
  - Diarrhoea [None]
